FAERS Safety Report 5290795-X (Version None)
Quarter: 2007Q2

REPORT INFORMATION
  Report Type: 
  Country: None (occurrence: None)
  Receive Date: 20070409
  Receipt Date: 20070328
  Transmission Date: 20071010
  Serious: Yes (Other)
  Sender: FDA-Public Use
  Company Number: JP-PFIZER INC-2007024976

PATIENT
  Age: 22 Year
  Sex: Female

DRUGS (4)
  1. PROVERA [Suspect]
     Route: 048
  2. DEPROMEL [Suspect]
     Route: 048
  3. GASTER [Suspect]
     Route: 048
  4. CEREKINON [Suspect]
     Route: 048

REACTIONS (3)
  - DISTURBANCE IN ATTENTION [None]
  - HEADACHE [None]
  - VISION BLURRED [None]
